FAERS Safety Report 8423830-8 (Version None)
Quarter: 2012Q2

REPORT INFORMATION
  Report Type: 
  Country: None (occurrence: None)
  Receive Date: 20120608
  Receipt Date: 20110930
  Transmission Date: 20120825
  Serious: No
  Sender: FDA-Public Use
  Company Number: US-ASTRAZENECA-2011SE18775

PATIENT
  Age: 54 Year
  Sex: Female

DRUGS (2)
  1. ATACAND [Suspect]
     Route: 048
     Dates: start: 20060101
  2. CRESTOR [Suspect]
     Route: 048
     Dates: start: 20060101

REACTIONS (1)
  - MALAISE [None]
